FAERS Safety Report 15488524 (Version 1)
Quarter: 2018Q4

REPORT INFORMATION
  Report Type: Spontaneous
  Country: US (occurrence: US)
  Receive Date: 20181011
  Receipt Date: 20181011
  Transmission Date: 20190205
  Serious: No
  Sender: FDA-Public Use
  Company Number: US-B.I. PHARMACEUTICALS,INC./RIDGEFIELD-2018-BI-049542

PATIENT
  Sex: Female

DRUGS (1)
  1. OFEV [Suspect]
     Active Substance: NINTEDANIB
     Indication: IDIOPATHIC PULMONARY FIBROSIS
     Dosage: ONE PILL TWICE DAILY;  FORM STRENGTH: 150 MG; FORMULATION: CAPSULE   ACTION TAKEN: DOSE NOT CHANGED
     Route: 048
     Dates: start: 20180915

REACTIONS (4)
  - Diarrhoea [Unknown]
  - Arthralgia [Unknown]
  - Cough [Unknown]
  - Pain in extremity [Unknown]
